FAERS Safety Report 16567642 (Version 2)
Quarter: 2020Q1

REPORT INFORMATION
  Report Type: Report from Study
  Country: None (occurrence: HU)
  Receive Date: 20190712
  Receipt Date: 20200201
  Transmission Date: 20200409
  Serious: Yes (Death)
  Sender: FDA-Public Use
  Company Number: HU-ABBVIE-19P-076-2851729-00

PATIENT
  Age: 75 Year
  Sex: Male

DRUGS (13)
  1. DIAPREL MR [Concomitant]
     Active Substance: GLICLAZIDE
     Indication: DIABETES MELLITUS
     Route: 048
     Dates: start: 1990
  2. DOXIUM [Concomitant]
     Active Substance: CALCIUM DOBESILATE
     Indication: DIABETIC MICROANGIOPATHY
     Route: 048
     Dates: start: 1990
  3. COVEREX AS KOMB FORTE [Concomitant]
     Indication: HYPERTONIA
     Dosage: 10/2.5 MG
     Route: 048
     Dates: start: 1990
  4. COVEREX AS [Concomitant]
     Active Substance: PERINDOPRIL ARGININE
     Indication: HYPERTONIA
     Route: 048
     Dates: start: 1990
  5. UROXAL [Concomitant]
     Indication: MICTURITION URGENCY
     Route: 048
     Dates: start: 201706
  6. DUODOPA [Suspect]
     Active Substance: CARBIDOPA\LEVODOPA
     Indication: PARKINSON^S DISEASE
     Dosage: TITRATION: DOSING AT END OF TITRATION: MD: 10.4 ML, CD: 2.8 ML/H, ED: 1 ML, 1X/D, 16 H
     Route: 050
     Dates: start: 20170907, end: 20170910
  7. RALNEA [Concomitant]
     Indication: PARKINSON^S DISEASE
     Route: 048
     Dates: start: 2007
  8. ASPIRIN. [Concomitant]
     Active Substance: ASPIRIN
     Indication: MYOCARDIAL ISCHAEMIA
     Route: 048
     Dates: start: 1999
  9. DUODOPA [Suspect]
     Active Substance: CARBIDOPA\LEVODOPA
     Route: 050
     Dates: start: 20171111, end: 201902
  10. ROCEPHINE [Concomitant]
     Active Substance: CEFTRIAXONE SODIUM
     Indication: PNEUMONIA
     Route: 042
     Dates: start: 20181210
  11. GABAGAMMA [Concomitant]
     Active Substance: GABAPENTIN
     Indication: DIABETIC NEUROPATHY
     Route: 048
     Dates: start: 1990
  12. MERCKFORMIN XR [Concomitant]
     Indication: DIABETES MELLITUS
     Route: 048
     Dates: start: 1990
  13. TAMSOL [Concomitant]
     Indication: MICTURITION URGENCY
     Route: 048
     Dates: start: 201706

REACTIONS (1)
  - Death [Fatal]

NARRATIVE: CASE EVENT DATE: 201902
